FAERS Safety Report 9848180 (Version 1)
Quarter: 2014Q1

REPORT INFORMATION
  Report Type: Spontaneous
  Country: US (occurrence: US)
  Receive Date: 20140128
  Receipt Date: 20140128
  Transmission Date: 20141002
  Serious: No
  Sender: FDA-Public Use
  Company Number: US-PFIZER INC-2014022186

PATIENT
  Age: 72 Year
  Sex: Female
  Weight: 70.3 kg

DRUGS (3)
  1. ATORVASTATIN CALCIUM [Suspect]
     Indication: BLOOD CHOLESTEROL INCREASED
     Dosage: UNK
  2. SIMVASTATIN [Suspect]
     Indication: BLOOD CHOLESTEROL INCREASED
     Dosage: UNK
  3. AMLODIPINE BESILATE [Concomitant]
     Indication: BLOOD PRESSURE
     Dosage: 5 MG, DAILY

REACTIONS (1)
  - Muscle spasms [Recovered/Resolved]
